FAERS Safety Report 17516656 (Version 1)
Quarter: 2020Q1

REPORT INFORMATION
  Report Type: Report from Study
  Country: US (occurrence: US)
  Receive Date: 20200309
  Receipt Date: 20200309
  Transmission Date: 20200409
  Serious: Yes (Other)
  Sender: FDA-Public Use
  Company Number: US-JNJFOC-20200125708

PATIENT
  Age: 55 Year
  Sex: Female
  Weight: 116.22 kg

DRUGS (1)
  1. STELARA [Suspect]
     Active Substance: USTEKINUMAB
     Indication: CROHN^S DISEASE
     Route: 058
     Dates: start: 201911

REACTIONS (11)
  - Body temperature decreased [Recovered/Resolved]
  - Arthralgia [Not Recovered/Not Resolved]
  - Inappropriate schedule of product administration [Unknown]
  - Deafness [Unknown]
  - Flushing [Recovered/Resolved]
  - Ear infection [Not Recovered/Not Resolved]
  - Visual impairment [Unknown]
  - Upper respiratory tract infection [Not Recovered/Not Resolved]
  - Headache [Recovered/Resolved]
  - Abdominal symptom [Unknown]
  - Product label issue [Unknown]

NARRATIVE: CASE EVENT DATE: 2019
